FAERS Safety Report 13649640 (Version 2)
Quarter: 2017Q2

REPORT INFORMATION
  Report Type: Report from Study
  Country: US (occurrence: US)
  Receive Date: 20170614
  Receipt Date: 20170621
  Transmission Date: 20170830
  Serious: Yes (Other)
  Sender: FDA-Public Use
  Company Number: US-ROCHE-1949587

PATIENT
  Age: 42 Year
  Sex: Female
  Weight: 55.84 kg

DRUGS (6)
  1. BENADRYL [Concomitant]
     Active Substance: DIPHENHYDRAMINE HYDROCHLORIDE
     Route: 065
     Dates: start: 20150106
  2. XOLAIR [Suspect]
     Active Substance: OMALIZUMAB
     Indication: IDIOPATHIC URTICARIA
     Dosage: NO
     Route: 058
     Dates: start: 201406, end: 201703
  3. ZYRTEC [Concomitant]
     Active Substance: CETIRIZINE HYDROCHLORIDE
     Route: 065
     Dates: start: 20150106
  4. PEPCID (UNITED STATES) [Concomitant]
     Route: 065
     Dates: start: 20150106
  5. DOXEPIN [Concomitant]
     Active Substance: DOXEPIN
  6. SINGULAIR [Concomitant]
     Active Substance: MONTELUKAST SODIUM

REACTIONS (13)
  - Rash [Unknown]
  - Urticaria [Unknown]
  - Maternal exposure during pregnancy [Unknown]
  - Seasonal allergy [Unknown]
  - Rhinorrhoea [Unknown]
  - Lip swelling [Recovering/Resolving]
  - Tonsillar hypertrophy [Unknown]
  - Abortion spontaneous [Unknown]
  - Urticaria [Recovered/Resolved]
  - Oedema peripheral [Unknown]
  - Sneezing [Unknown]
  - Anxiety [Unknown]
  - Nasal congestion [Unknown]

NARRATIVE: CASE EVENT DATE: 20150221
